FAERS Safety Report 12911208 (Version 1)
Quarter: 2016Q4

REPORT INFORMATION
  Report Type: Spontaneous
  Country: US (occurrence: US)
  Receive Date: 20161104
  Receipt Date: 20161104
  Transmission Date: 20170207
  Serious: No
  Sender: FDA-Public Use
  Company Number: US-TEVA-708250USA

PATIENT
  Sex: Female

DRUGS (1)
  1. AZILECT [Suspect]
     Active Substance: RASAGILINE MESYLATE
     Dosage: 2 MG /24 HRS
     Dates: end: 2013

REACTIONS (2)
  - Psychotic disorder [Unknown]
  - Compulsions [Unknown]

NARRATIVE: CASE EVENT DATE: 2013
